FAERS Safety Report 5781728-8 (Version None)
Quarter: 2008Q2

REPORT INFORMATION
  Report Type: 
  Country: None (occurrence: None)
  Receive Date: 20080606
  Receipt Date: 20080526
  Transmission Date: 20081010
  Serious: Yes (Life-Threatening)
  Sender: FDA-Public Use
  Company Number: THYM-1000702

PATIENT
  Age: 62 Year
  Sex: Female

DRUGS (2)
  1. THYMOGLOBULIN [Suspect]
     Indication: RENAL TRANSPLANT
     Dosage: 75 MG, QD, INTRAVENOUS
     Route: 042
     Dates: start: 20080327, end: 20080327
  2. CEFAZOLIN [Concomitant]

REACTIONS (2)
  - CYTOKINE RELEASE SYNDROME [None]
  - SHOCK [None]
